FAERS Safety Report 4837310-X (Version None)
Quarter: 2005Q4

REPORT INFORMATION
  Report Type: 
  Country: None (occurrence: None)
  Receive Date: 20051122
  Receipt Date: 20051021
  Transmission Date: 20060501
  Serious: Yes (Disabling)
  Sender: FDA-Public Use
  Company Number: S05-UKI-05160-01

PATIENT
  Age: 77 Year
  Sex: Female

DRUGS (6)
  1. CIPRALEX (ESCITALOPRAM) [Suspect]
     Indication: AGITATION
     Dosage: 5 MG QD PO
     Route: 048
     Dates: start: 20050223, end: 20050316
  2. CIPRALEX (ESCITALOPRAM) [Suspect]
     Indication: DEPRESSION
     Dosage: 5 MG QD PO
     Route: 048
     Dates: start: 20050223, end: 20050316
  3. ETORICOXIB [Concomitant]
  4. TEMAZEPAM [Concomitant]
  5. CO-AMILOFRUSE [Concomitant]
  6. DIGOXIN [Concomitant]

REACTIONS (1)
  - BURNING SENSATION [None]
